FAERS Safety Report 22755828 (Version 3)
Quarter: 2024Q1

REPORT INFORMATION
  Report Type: Spontaneous
  Country: ES (occurrence: ES)
  Receive Date: 20230727
  Receipt Date: 20240123
  Transmission Date: 20240410
  Serious: Yes (Other)
  Sender: FDA-Public Use
  Company Number: ES-BRISTOL-MYERS SQUIBB COMPANY-2023-103205

PATIENT
  Age: 69 Year
  Sex: Female

DRUGS (1)
  1. LENALIDOMIDE [Suspect]
     Active Substance: LENALIDOMIDE
     Indication: Plasma cell myeloma
     Dosage: PATIENT RECEIVED 4 CYCLES INITIALLY THEN 2 CYCLES AND MAINTENANCE THERAPY WAS STARTED AT 10MG 1 EVER
     Route: 048

REACTIONS (1)
  - B-cell type acute leukaemia [Unknown]
